FAERS Safety Report 10079191 (Version 1)
Quarter: 2014Q2

REPORT INFORMATION
  Report Type: Report from Study
  Country: CA (occurrence: CA)
  Receive Date: 20140415
  Receipt Date: 20140415
  Transmission Date: 20141212
  Serious: Yes (Other)
  Sender: FDA-Public Use
  Company Number: PHHY2014CA045340

PATIENT
  Sex: Female

DRUGS (3)
  1. SANDOSTATIN LAR [Suspect]
     Indication: BREAST CANCER
     Dosage: 20 MG, QMO
     Route: 030
     Dates: start: 20140312, end: 20140312
  2. SANDOSTATIN LAR [Suspect]
     Indication: METASTASES TO PERITONEUM
  3. SANDOSTATIN LAR [Suspect]
     Indication: OFF LABEL USE

REACTIONS (1)
  - Terminal state [Unknown]
